FAERS Safety Report 22637226 (Version 1)
Quarter: 2023Q2

REPORT INFORMATION
  Report Type: Spontaneous
  Country: US (occurrence: None)
  Receive Date: 20230621
  Receipt Date: 20230621
  Transmission Date: 20230722
  Serious: Yes (Death)
  Sender: FDA-Public Use
  Company Number: None

PATIENT
  Sex: Female

DRUGS (1)
  1. VERZENIO [Suspect]
     Active Substance: ABEMACICLIB
     Indication: Breast cancer female
     Dosage: 300MG TWICE A DAY ORAL?
     Route: 048
     Dates: start: 202206, end: 202306

REACTIONS (2)
  - Breast cancer female [None]
  - Malignant neoplasm progression [None]
